FAERS Safety Report 4559129-X (Version None)
Quarter: 2005Q1

REPORT INFORMATION
  Report Type: 
  Country: None (occurrence: None)
  Receive Date: 20050124
  Receipt Date: 20050113
  Transmission Date: 20050727
  Serious: Yes (Other)
  Sender: FDA-Public Use
  Company Number: ESWYE345717JAN05

PATIENT
  Sex: Male

DRUGS (1)
  1. ENBREL [Suspect]
     Indication: ANKYLOSING SPONDYLITIS
     Dosage: UNKNOWN

REACTIONS (3)
  - ANGIOTENSIN CONVERTING ENZYME INCREASED [None]
  - CUTANEOUS SARCOIDOSIS [None]
  - HILAR LYMPHADENOPATHY [None]
